FAERS Safety Report 9632831 (Version 1)
Quarter: 2013Q4

REPORT INFORMATION
  Report Type: Spontaneous
  Country: US (occurrence: DE)
  Receive Date: 20131018
  Receipt Date: 20131018
  Transmission Date: 20140711
  Serious: Yes (Disabling)
  Sender: FDA-Public Use
  Company Number: DE-FRI-1000050237

PATIENT
  Age: 63 Year
  Sex: Male
  Weight: 82 kg

DRUGS (21)
  1. ROFLUMILAST [Suspect]
     Indication: CHRONIC OBSTRUCTIVE PULMONARY DISEASE
     Dosage: 500 MCG
     Dates: start: 201203, end: 2013
  2. ROFLUMILAST [Suspect]
     Indication: EMPHYSEMA
     Dosage: 500 MCG
     Dates: start: 20130808
  3. OXYCODON [Concomitant]
     Dosage: 20 MG
  4. BERODUAL [Concomitant]
     Route: 055
  5. BUDIAIR [Concomitant]
  6. CODICAPS MONO [Concomitant]
  7. DEXA PHLOGONT L [Concomitant]
  8. LACTULOSE 1A [Concomitant]
  9. MOVICOL [Concomitant]
  10. MYOSON DIRECT [Concomitant]
  11. ARLEVERT [Concomitant]
  12. OXIS TURBOHALER [Concomitant]
     Route: 055
  13. ASS [Concomitant]
     Dosage: 100 MG
  14. PARACODIN N [Concomitant]
  15. RAMIPRIL-CT [Concomitant]
     Dosage: 2.5 MG
  16. RHINISAN [Concomitant]
  17. SPIRIVA [Concomitant]
  18. TRAMADOLOR [Concomitant]
  19. URO-TABLINEN [Concomitant]
  20. VESIKUR [Concomitant]
     Dosage: 10 MG
  21. OMEP [Concomitant]
     Dosage: 20 MG

REACTIONS (1)
  - Salivary gland adenoma [Not Recovered/Not Resolved]
